FAERS Safety Report 19218384 (Version 1)
Quarter: 2021Q2

REPORT INFORMATION
  Report Type: Spontaneous
  Country: US (occurrence: US)
  Receive Date: 20210505
  Receipt Date: 20210505
  Transmission Date: 20210717
  Serious: Yes (Other)
  Sender: FDA-Public Use
  Company Number: US-TEVA-2021-US-1907169

PATIENT
  Sex: Male

DRUGS (6)
  1. CALCIUM [Suspect]
     Active Substance: CALCIUM
     Indication: MINERAL SUPPLEMENTATION
     Dosage: EQUIVALENT TO 2100 MG ELEMENTAL CALCIUM DAILY
     Route: 065
  2. CALCIUM [Suspect]
     Active Substance: CALCIUM
     Indication: HYPOCALCAEMIA
     Dosage: EQUIVALENT TO 600 MG ELEMENTAL CALCIUM DAILY; ONE YEAR PRIOR TO THE INITIATION OF PARATHYROID HORMON
     Route: 065
  3. CALCITRIOL. [Suspect]
     Active Substance: CALCITRIOL
     Indication: HYPOCALCAEMIA
     Dosage: .3 MICROGRAM DAILY;
     Route: 065
  4. CALCITRIOL. [Suspect]
     Active Substance: CALCITRIOL
     Dosage: .3 MICROGRAM DAILY; AT THE TIME OF THE INITIATION OF PARATHYROID HORMONE
     Route: 065
  5. CALCITRIOL. [Suspect]
     Active Substance: CALCITRIOL
     Dosage: .9 MICROGRAM DAILY; ONE YEAR PRIOR TO THE INITIATION OF PARATHYROID HORMONE
     Route: 065
  6. CALCIUM [Suspect]
     Active Substance: CALCIUM
     Dosage: EQUIVALENT TO 2400 MG ELEMENTAL CALCIUM DAILY; AT THE TIME OF THE INITIATION OF PARATHYROID HORMONE
     Route: 065

REACTIONS (3)
  - Nephrocalcinosis [Not Recovered/Not Resolved]
  - Hypercalciuria [Recovering/Resolving]
  - Nephrolithiasis [Not Recovered/Not Resolved]
